FAERS Safety Report 15710663 (Version 1)
Quarter: 2018Q4

REPORT INFORMATION
  Report Type: Spontaneous
  Country: JP (occurrence: JP)
  Receive Date: 20181211
  Receipt Date: 20181211
  Transmission Date: 20190205
  Serious: Yes (Life-Threatening, Other)
  Sender: FDA-Public Use
  Company Number: JP-ELI_LILLY_AND_COMPANY-JP201810002554

PATIENT
  Age: 31 Year
  Sex: Female
  Weight: 40 kg

DRUGS (4)
  1. CYRAMZA [Suspect]
     Active Substance: RAMUCIRUMAB
     Indication: GASTRIC CANCER STAGE IV
     Dosage: 320 G, SINGLE
     Route: 041
     Dates: start: 20180919, end: 20180919
  2. TRAMAL [Concomitant]
     Active Substance: TRAMADOL
     Indication: ABDOMINAL PAIN
     Dosage: 100 G, DAILY
     Route: 048
     Dates: start: 20180919
  3. TAKECAB [Concomitant]
     Active Substance: VONOPRAZAN FUMURATE
     Indication: ABDOMINAL PAIN UPPER
     Dosage: 20 G, DAILY
     Route: 048
     Dates: start: 20171206
  4. CALONAL [Concomitant]
     Active Substance: ACETAMINOPHEN
     Indication: ABDOMINAL PAIN
     Dosage: 500 G, DAILY
     Route: 048
     Dates: start: 20180829

REACTIONS (3)
  - Peritonitis [Unknown]
  - Malignant neoplasm progression [Unknown]
  - Gastric perforation [Recovered/Resolved]

NARRATIVE: CASE EVENT DATE: 20180925
